FAERS Safety Report 5529397-6 (Version None)
Quarter: 2007Q4

REPORT INFORMATION
  Report Type: 
  Country: None (occurrence: None)
  Receive Date: 20071129
  Receipt Date: 20071128
  Transmission Date: 20080405
  Serious: Yes (Hospitalization)
  Sender: FDA-Public Use
  Company Number: D0055282A

PATIENT
  Age: 20 Year
  Sex: Female
  Weight: 60 kg

DRUGS (2)
  1. LAMICTAL [Suspect]
     Dosage: 350MG SINGLE DOSE
     Route: 048
     Dates: start: 20071101, end: 20071101
  2. BACLOFEN [Suspect]
     Dosage: 130MG SINGLE DOSE
     Route: 048
     Dates: start: 20071101, end: 20071101

REACTIONS (2)
  - DRUG DISPENSING ERROR [None]
  - VOMITING [None]
